FAERS Safety Report 9123416 (Version 1)
Quarter: 2013Q1

REPORT INFORMATION
  Report Type: Spontaneous
  Country: IT (occurrence: IT)
  Receive Date: 20130115
  Receipt Date: 20130115
  Transmission Date: 20140127
  Serious: Yes (Life-Threatening)
  Sender: FDA-Public Use
  Company Number: IT-BRISTOL-MYERS SQUIBB COMPANY-17275256

PATIENT
  Age: 88 Year
  Sex: Female
  Weight: 74 kg

DRUGS (7)
  1. COUMADIN TABS 5 MG [Suspect]
     Indication: ATRIAL FIBRILLATION
     Route: 048
     Dates: start: 20120417, end: 20121109
  2. DILTIAZEM HCL TABS [Concomitant]
     Route: 048
  3. REMERON [Concomitant]
     Dosage: REMERON TABS?1DF=0.5 DOSAGE UNIT
     Route: 048
  4. LASITONE [Concomitant]
     Dosage: FORMULATION-LASITONE 25MG +37 MG TABS?1DF-1 UNIT
     Route: 048
  5. TRIATEC [Concomitant]
     Dosage: TRIATEC 5MG TABS
     Route: 048
  6. LANOXIN [Concomitant]
     Dosage: FORMULATION-LANOXIN 0.125 MG TABS?1DF=1 UNIT
     Route: 048
  7. FUROSEMIDE [Concomitant]
     Dosage: FORMULATION-FUROSEMIDE 25MG TABS?1DF-4 UNITS
     Route: 048

REACTIONS (1)
  - Dermatitis bullous [Recovered/Resolved]
